FAERS Safety Report 5006050-9 (Version None)
Quarter: 2006Q1

REPORT INFORMATION
  Report Type: 
  Country: None (occurrence: None)
  Receive Date: 20060320
  Receipt Date: 20060105
  Transmission Date: 20060701
  Serious: Yes (Death)
  Sender: FDA-Public Use
  Company Number: 2004-11-0114

PATIENT
  Age: 46 Year
  Sex: Male

DRUGS (12)
  1. PEG-INTRON [Suspect]
     Indication: HEPATITIS C
     Dosage: 159 MCG QWK SUBCUTANEOUS
     Route: 058
     Dates: start: 20020111, end: 20021104
  2. REBETOL [Suspect]
     Indication: HEPATITIS C
     Dosage: 1200 MG QD ORAL
     Route: 048
     Dates: start: 20020111
  3. AMBIEN [Concomitant]
  4. PAXIL [Concomitant]
  5. ZYDONE [Concomitant]
  6. MIK THISTLE FRUIT [Concomitant]
  7. ADVIL [Concomitant]
  8. KETOPROFEN [Concomitant]
  9. RESTORIL [Concomitant]
  10. NAPROSYN [Concomitant]
  11. SULFASALAZINE [Concomitant]
  12. TRILISATE [Concomitant]

REACTIONS (1)
  - COMPLETED SUICIDE [None]
